FAERS Safety Report 7904351-5 (Version None)
Quarter: 2011Q4

REPORT INFORMATION
  Report Type: 
  Country: None (occurrence: None)
  Receive Date: 20111109
  Receipt Date: 20111107
  Transmission Date: 20120403
  Serious: Yes (Life-Threatening, Hospitalization)
  Sender: FDA-Public Use
  Company Number: AU-AMGEN-AUSSP2011039162

PATIENT
  Age: 78 Year
  Sex: Male
  Weight: 88 kg

DRUGS (8)
  1. FUROSEMIDE [Concomitant]
     Indication: OEDEMA
  2. VYTORIN [Concomitant]
     Indication: BLOOD CHOLESTEROL
  3. OMEPRAZOLE [Concomitant]
  4. NPLATE [Suspect]
     Indication: IDIOPATHIC THROMBOCYTOPENIC PURPURA
     Dosage: 10 MUG/KG, UNK
     Dates: start: 20100212, end: 20101201
  5. OCTAGAM [Suspect]
  6. DILANTIN [Concomitant]
  7. PREDNISOLONE [Concomitant]
  8. ARICEPT [Concomitant]
     Indication: DEMENTIA ALZHEIMER'S TYPE

REACTIONS (1)
  - HAEMOLYTIC ANAEMIA [None]
